FAERS Safety Report 11363290 (Version 1)
Quarter: 2015Q3

REPORT INFORMATION
  Report Type: Spontaneous
  Country: IN (occurrence: IN)
  Receive Date: 20150811
  Receipt Date: 20150811
  Transmission Date: 20151125
  Serious: Yes (Hospitalization, Other)
  Sender: FDA-Public Use
  Company Number: IN-AXELLIA-000852

PATIENT
  Age: 20 Year
  Sex: Female

DRUGS (1)
  1. COLISTIN [Suspect]
     Active Substance: COLISTIN
     Indication: PRODUCT USED FOR UNKNOWN INDICATION
     Route: 042

REACTIONS (6)
  - Hallucination [Recovered/Resolved]
  - Somnolence [Recovered/Resolved]
  - Encephalopathy [Recovered/Resolved]
  - Respiratory depression [Recovered/Resolved]
  - Chills [Recovered/Resolved]
  - Muscle twitching [Recovered/Resolved]
